FAERS Safety Report 6543901-0 (Version None)
Quarter: 2010Q1

REPORT INFORMATION
  Report Type: 
  Country: None (occurrence: None)
  Receive Date: 20100119
  Receipt Date: 20100119
  Transmission Date: 20100710
  Serious: Yes (Other)
  Sender: FDA-Public Use
  Company Number: None

PATIENT
  Age: 38 Year
  Sex: Female
  Weight: 56.6996 kg

DRUGS (2)
  1. TYLENOL (CAPLET) [Suspect]
     Indication: HEADACHE
     Dosage: 4-6 TABLETS DAILY PO
     Route: 048
     Dates: start: 20100104, end: 20100115
  2. TYLENOL (CAPLET) [Suspect]
     Indication: PAIN
     Dosage: 4-6 TABLETS DAILY PO
     Route: 048
     Dates: start: 20100104, end: 20100115

REACTIONS (3)
  - ABDOMINAL DISCOMFORT [None]
  - DIARRHOEA [None]
  - PRODUCT QUALITY ISSUE [None]
